FAERS Safety Report 10456531 (Version 1)
Quarter: 2014Q3

REPORT INFORMATION
  Report Type: Spontaneous
  Country: US (occurrence: None)
  Receive Date: 20140915
  Receipt Date: 20140915
  Transmission Date: 20150326
  Serious: No
  Sender: FDA-Public Use
  Company Number: None

PATIENT

DRUGS (1)
  1. LIDOCAINE HCL [Suspect]
     Active Substance: LIDOCAINE HYDROCHLORIDE
     Indication: ANAESTHESIA
     Dosage: UD PER PROCEDURE , TRANSUTHERAL
     Dates: end: 20140910

REACTIONS (2)
  - Laceration [None]
  - Product package associated injury [None]

NARRATIVE: CASE EVENT DATE: 20140910
